FAERS Safety Report 8102231-6 (Version None)
Quarter: 2012Q1

REPORT INFORMATION
  Report Type: 
  Country: None (occurrence: None)
  Receive Date: 20120201
  Receipt Date: 20120123
  Transmission Date: 20120608
  Serious: Yes (Other)
  Sender: FDA-Public Use
  Company Number: US-AMGEN-USASP2012004938

PATIENT
  Sex: Female

DRUGS (3)
  1. ENBREL [Suspect]
     Indication: PSORIASIS
     Dosage: UNK
     Dates: start: 20060101
  2. ADALIMUMAB [Concomitant]
     Indication: PSORIASIS
     Dosage: UNK
     Dates: start: 20060101
  3. REMICADE [Concomitant]
     Indication: PSORIASIS
     Dosage: UNK
     Dates: start: 20060101

REACTIONS (3)
  - INFUSION RELATED REACTION [None]
  - ANAPHYLACTIC REACTION [None]
  - INFECTION [None]
